FAERS Safety Report 11438178 (Version 2)
Quarter: 2016Q2

REPORT INFORMATION
  Report Type: Report from Study
  Country: US (occurrence: US)
  Receive Date: 20150901
  Receipt Date: 20160513
  Transmission Date: 20160815
  Serious: Yes (Hospitalization, Other)
  Sender: FDA-Public Use
  Company Number: US-ROCHE-1628775

PATIENT
  Age: 57 Year
  Sex: Female
  Weight: 59.47 kg

DRUGS (6)
  1. TRAMADOL. [Concomitant]
     Active Substance: TRAMADOL
  2. FOLIC ACID. [Concomitant]
     Active Substance: FOLIC ACID
  3. ACTEMRA [Suspect]
     Active Substance: TOCILIZUMAB
     Route: 058
     Dates: start: 201504
  4. AMBIEN [Concomitant]
     Active Substance: ZOLPIDEM TARTRATE
  5. ACTEMRA [Suspect]
     Active Substance: TOCILIZUMAB
     Indication: RHEUMATOID ARTHRITIS
     Route: 058
     Dates: start: 20140430
  6. XANAX [Concomitant]
     Active Substance: ALPRAZOLAM

REACTIONS (6)
  - Blood urine present [Not Recovered/Not Resolved]
  - Nephrolithiasis [Unknown]
  - Abdominal pain lower [Unknown]
  - Back pain [Unknown]
  - Abdominal pain [Unknown]
  - Flank pain [Unknown]

NARRATIVE: CASE EVENT DATE: 20140502
